FAERS Safety Report 25826783 (Version 1)
Quarter: 2025Q3

REPORT INFORMATION
  Report Type: Spontaneous
  Country: EU (occurrence: EU)
  Receive Date: 20250920
  Receipt Date: 20250920
  Transmission Date: 20251020
  Serious: Yes (Other)
  Sender: ACCORD
  Company Number: EU-MLMSERVICE-20250904-PI632131-00082-1

PATIENT
  Age: 16 Month
  Sex: Female

DRUGS (12)
  1. CARBOPLATIN [Suspect]
     Active Substance: CARBOPLATIN
     Indication: Myopericytoma
     Dates: start: 201808, end: 201902
  2. ETOPOSIDE [Suspect]
     Active Substance: ETOPOSIDE
     Indication: Myopericytoma
     Dates: start: 201808, end: 201902
  3. ACTINOMYCIN D [Suspect]
     Active Substance: DACTINOMYCIN
     Indication: Myopericytoma
     Dates: start: 201807, end: 201902
  4. IFOSFAMIDE [Suspect]
     Active Substance: IFOSFAMIDE
     Indication: Myopericytoma
     Dates: start: 201808, end: 201902
  5. EPIRUBICIN [Suspect]
     Active Substance: EPIRUBICIN
     Indication: Myopericytoma
     Dates: start: 201808, end: 201902
  6. VINCRISTINE [Suspect]
     Active Substance: VINCRISTINE
     Indication: Myopericytoma
     Dates: start: 201807, end: 201902
  7. IFOSFAMIDE [Suspect]
     Active Substance: IFOSFAMIDE
     Indication: Metastases to lymph nodes
     Dates: start: 201808, end: 201902
  8. ACTINOMYCIN D [Suspect]
     Active Substance: DACTINOMYCIN
     Indication: Metastases to lymph nodes
     Dates: start: 201807, end: 201902
  9. ETOPOSIDE [Suspect]
     Active Substance: ETOPOSIDE
     Indication: Metastases to lymph nodes
     Dates: start: 201808, end: 201902
  10. CARBOPLATIN [Suspect]
     Active Substance: CARBOPLATIN
     Indication: Metastases to lymph nodes
     Dates: start: 201808, end: 201902
  11. EPIRUBICIN [Suspect]
     Active Substance: EPIRUBICIN
     Indication: Metastases to lymph nodes
     Dates: start: 201808, end: 201902
  12. VINCRISTINE [Suspect]
     Active Substance: VINCRISTINE
     Indication: Metastases to lymph nodes
     Dates: start: 201807, end: 201902

REACTIONS (2)
  - Cytopenia [Unknown]
  - Off label use [Unknown]
